FAERS Safety Report 21799251 (Version 1)
Quarter: 2022Q4

REPORT INFORMATION
  Report Type: Spontaneous
  Country: RU (occurrence: None)
  Receive Date: 20221230
  Receipt Date: 20221230
  Transmission Date: 20230113
  Serious: Yes (Other)
  Sender: FDA-Public Use
  Company Number: 2022A418478

PATIENT
  Age: 63 Year
  Sex: Female
  Weight: 60 kg

DRUGS (1)
  1. EVUSHELD [Suspect]
     Active Substance: CILGAVIMAB\TIXAGEVIMAB
     Indication: COVID-19 prophylaxis
     Dosage: ONCE/SINGLE ADMINISTRATION, 300 MG (TIXAGEVIMAB 150 MG/ CILGAVIMAB 150 MG) ? 1ST DOSE
     Route: 030
     Dates: start: 20221221

REACTIONS (8)
  - Blood pressure increased [Not Recovered/Not Resolved]
  - Heart rate increased [Not Recovered/Not Resolved]
  - Diarrhoea [Not Recovered/Not Resolved]
  - Dyspnoea [Not Recovered/Not Resolved]
  - Pyrexia [Not Recovered/Not Resolved]
  - Headache [Not Recovered/Not Resolved]
  - Body temperature increased [Not Recovered/Not Resolved]
  - Hypoaesthesia [Not Recovered/Not Resolved]

NARRATIVE: CASE EVENT DATE: 20221221
